FAERS Safety Report 9822454 (Version 2)
Quarter: 2014Q1

REPORT INFORMATION
  Report Type: Spontaneous
  Country: US (occurrence: US)
  Receive Date: 20140116
  Receipt Date: 20140116
  Transmission Date: 20141002
  Serious: No
  Sender: FDA-Public Use
  Company Number: US-ORAPHARMA-QUINORA-2012-019

PATIENT
  Sex: 0

DRUGS (1)
  1. ARESTIN [Suspect]
     Indication: PERIODONTAL DISEASE
     Dosage: 9 DF, ONE TIME DOSE
     Route: 048
     Dates: start: 20120409, end: 20120409

REACTIONS (5)
  - Tinnitus [Recovering/Resolving]
  - Diarrhoea [Recovered/Resolved]
  - Chills [Recovered/Resolved]
  - Pyrexia [Recovered/Resolved]
  - Gingival swelling [Recovered/Resolved]
